FAERS Safety Report 6659819-9 (Version None)
Quarter: 2010Q1

REPORT INFORMATION
  Report Type: 
  Country: None (occurrence: None)
  Receive Date: 20100330
  Receipt Date: 20100322
  Transmission Date: 20100710
  Serious: Yes (Other)
  Sender: FDA-Public Use
  Company Number: US-AMGEN-QUU401079

PATIENT
  Age: 55 Year
  Sex: Female

DRUGS (11)
  1. ENBREL [Suspect]
     Indication: PSORIASIS
     Dates: start: 20070101
  2. ENBREL [Suspect]
     Indication: RHEUMATOID ARTHRITIS
  3. ACTONEL [Concomitant]
  4. SYNTHROID [Concomitant]
  5. LIPITOR [Concomitant]
  6. PROZAC [Concomitant]
  7. VALTREX [Concomitant]
  8. DEPAKOTE [Concomitant]
  9. PHENOBARBITAL TAB [Concomitant]
  10. BUSPAR [Concomitant]
  11. PREVACID [Concomitant]

REACTIONS (7)
  - BLOOD PARATHYROID HORMONE INCREASED [None]
  - EXOSTOSIS [None]
  - FIBROMYALGIA [None]
  - MALAISE [None]
  - NERVE INJURY [None]
  - OSTEOPENIA [None]
  - OSTEOPOROSIS [None]
